FAERS Safety Report 21516973 (Version 1)
Quarter: 2022Q4

REPORT INFORMATION
  Report Type: Spontaneous
  Country: US (occurrence: US)
  Receive Date: 20221028
  Receipt Date: 20221028
  Transmission Date: 20230113
  Serious: Yes (Hospitalization)
  Sender: FDA-Public Use
  Company Number: US-SA-SAC20221021000709

PATIENT
  Age: 34 Year
  Sex: Female

DRUGS (1)
  1. CABLIVI [Suspect]
     Active Substance: CAPLACIZUMAB-YHDP
     Indication: Thrombotic microangiopathy
     Dosage: 11 MG
     Route: 058

REACTIONS (5)
  - Haemoglobin decreased [Unknown]
  - ADAMTS13 activity abnormal [Unknown]
  - Amnesia [Unknown]
  - Heavy menstrual bleeding [Unknown]
  - Product use in unapproved indication [Unknown]
